FAERS Safety Report 17814953 (Version 1)
Quarter: 2020Q2

REPORT INFORMATION
  Report Type: Spontaneous
  Country: CA (occurrence: CA)
  Receive Date: 20200522
  Receipt Date: 20200522
  Transmission Date: 20200714
  Serious: Yes (Other)
  Sender: FDA-Public Use
  Company Number: CA-ROCHE-2603644

PATIENT
  Age: 50 Year

DRUGS (4)
  1. FLUOROURACIL. [Suspect]
     Active Substance: FLUOROURACIL
     Indication: COLORECTAL CANCER METASTATIC
     Route: 065
  2. BEVACIZUMAB. [Suspect]
     Active Substance: BEVACIZUMAB
     Indication: COLORECTAL CANCER METASTATIC
     Route: 065
  3. IRINOTECAN [Concomitant]
     Active Substance: IRINOTECAN
  4. FOLINIC ACID [Concomitant]
     Active Substance: LEUCOVORIN

REACTIONS (1)
  - Cardiotoxicity [Unknown]
